FAERS Safety Report 8849381 (Version 1)
Quarter: 2012Q4

REPORT INFORMATION
  Report Type: 
  Country: US (occurrence: None)
  Receive Date: 20121018
  Receipt Date: 20121018
  Transmission Date: 20130627
  Serious: Yes (Hospitalization)
  Sender: FDA-Public Use
  Company Number: None

PATIENT
  Sex: Female
  Weight: 79 kg

DRUGS (9)
  1. CARBOPLATIN [Suspect]
  2. PACLITAXEL (TAXOL) [Suspect]
  3. DEXAMETHASONE [Concomitant]
  4. DIPHENHYDRAMINE [Concomitant]
  5. EFFEXOR [Concomitant]
  6. FAMOTIDINE [Concomitant]
  7. LORAZEPAM [Concomitant]
  8. NEULASTA [Concomitant]
  9. ONDANSETRON [Concomitant]

REACTIONS (3)
  - Abdominal pain [None]
  - Nausea [None]
  - Vomiting [None]
